FAERS Safety Report 15481007 (Version 2)
Quarter: 2018Q4

REPORT INFORMATION
  Report Type: Spontaneous
  Country: BE (occurrence: BE)
  Receive Date: 20181010
  Receipt Date: 20181108
  Transmission Date: 20190205
  Serious: Yes (Other)
  Sender: FDA-Public Use
  Company Number: BE-TOLMAR, INC.-2018BE008346

PATIENT

DRUGS (2)
  1. ELIGARD [Suspect]
     Active Substance: LEUPROLIDE ACETATE
     Indication: SALIVARY GLAND CANCER
     Dosage: 7.5 MG, MONTHLY
     Route: 065
     Dates: start: 20180730
  2. BICALUTAMIDE. [Concomitant]
     Active Substance: BICALUTAMIDE
     Dosage: UNK
     Dates: start: 20180725, end: 20180925

REACTIONS (22)
  - Nausea [Unknown]
  - Asthenia [Unknown]
  - Vomiting [Unknown]
  - Syncope [Unknown]
  - Hypophagia [Unknown]
  - Weight decreased [Unknown]
  - Facial pain [Unknown]
  - Dry mouth [Unknown]
  - Dysgeusia [Unknown]
  - Hepatic enzyme increased [Unknown]
  - Mucosal inflammation [Unknown]
  - Erythema [Unknown]
  - Oropharyngeal pain [Unknown]
  - Fatigue [Unknown]
  - Depressive symptom [Unknown]
  - Neuralgia [Recovered/Resolved]
  - Oral candidiasis [Unknown]
  - Feeling abnormal [Unknown]
  - Discomfort [Unknown]
  - Fatigue [Unknown]
  - Chills [Unknown]
  - Product use in unapproved indication [Unknown]

NARRATIVE: CASE EVENT DATE: 20180730
